FAERS Safety Report 10075553 (Version 2)
Quarter: 2014Q2

REPORT INFORMATION
  Report Type: Spontaneous
  Country: JP (occurrence: JP)
  Receive Date: 20140414
  Receipt Date: 20140421
  Transmission Date: 20141212
  Serious: Yes (Other)
  Sender: FDA-Public Use
  Company Number: JP-JNJFOC-20140404243

PATIENT
  Age: 39 Year
  Sex: Male

DRUGS (6)
  1. INVEGA [Suspect]
     Indication: SCHIZOPHRENIA
     Route: 048
     Dates: start: 201402
  2. INVEGA [Suspect]
     Indication: SCHIZOPHRENIA
     Route: 048
     Dates: start: 2014
  3. INVEGA [Suspect]
     Indication: SCHIZOPHRENIA
     Route: 048
     Dates: start: 2014, end: 2014
  4. RISPERIDONE [Suspect]
     Indication: SCHIZOPHRENIA
     Route: 048
     Dates: start: 2014
  5. RISPERIDONE [Suspect]
     Indication: SCHIZOPHRENIA
     Route: 048
     Dates: end: 2014
  6. RISPERIDONE [Suspect]
     Indication: SCHIZOPHRENIA
     Route: 048
     Dates: start: 2014

REACTIONS (5)
  - Hallucination, auditory [Recovering/Resolving]
  - Aphasia [Recovering/Resolving]
  - Ataxia [Recovering/Resolving]
  - Urinary incontinence [Recovering/Resolving]
  - Drug prescribing error [Unknown]
